FAERS Safety Report 8457296-9 (Version None)
Quarter: 2012Q2

REPORT INFORMATION
  Report Type: 
  Country: None (occurrence: None)
  Receive Date: 20120621
  Receipt Date: 20120615
  Transmission Date: 20120825
  Serious: Yes (Death, Other)
  Sender: FDA-Public Use
  Company Number: BE-ELI_LILLY_AND_COMPANY-BE201205005031

PATIENT
  Age: 60 Year
  Sex: Female

DRUGS (1)
  1. ALIMTA [Suspect]
     Indication: THYMOMA
     Dosage: UNK, UNKNOWN
     Route: 065

REACTIONS (3)
  - PNEUMONITIS [None]
  - DEATH [None]
  - OFF LABEL USE [None]
